FAERS Safety Report 8516950-0 (Version None)
Quarter: 2012Q3

REPORT INFORMATION
  Report Type: 
  Country: None (occurrence: None)
  Receive Date: 20120718
  Receipt Date: 20120710
  Transmission Date: 20120928
  Serious: Yes (Other)
  Sender: FDA-Public Use
  Company Number: JP-ELI_LILLY_AND_COMPANY-JP201207003446

PATIENT
  Sex: Female

DRUGS (5)
  1. TAIPROTON [Concomitant]
  2. ENBREL [Concomitant]
  3. CRESTOR [Concomitant]
  4. EVISTA [Suspect]
     Indication: OSTEOPOROSIS
     Dosage: 60 MG, QD
     Route: 048
     Dates: end: 20120622
  5. ONEALFA [Concomitant]

REACTIONS (1)
  - LIVER DISORDER [None]
